FAERS Safety Report 8176495-7 (Version None)
Quarter: 2012Q1

REPORT INFORMATION
  Report Type: 
  Country: None (occurrence: None)
  Receive Date: 20120301
  Receipt Date: 20120223
  Transmission Date: 20120608
  Serious: Yes (Other)
  Sender: FDA-Public Use
  Company Number: BR-PFIZER INC-2012048986

PATIENT
  Age: 90 Year
  Sex: Female

DRUGS (1)
  1. XALATAN [Suspect]
     Indication: GLAUCOMA
     Dosage: 1.5 UG (ONE DROP IN RIGHT EYE), 1X/DAY
     Route: 047

REACTIONS (1)
  - CATARACT [None]
